FAERS Safety Report 9055557 (Version 1)
Quarter: 2013Q1

REPORT INFORMATION
  Report Type: Report from Study
  Country: US (occurrence: US)
  Receive Date: 20130206
  Receipt Date: 20130206
  Transmission Date: 20140127
  Serious: Yes (Hospitalization)
  Sender: FDA-Public Use
  Company Number: US-JNJFOC-20130200641

PATIENT
  Age: 17 None
  Sex: Female
  Weight: 95.3 kg

DRUGS (7)
  1. INFLIXIMAB, RECOMBINANT [Suspect]
     Indication: INFLAMMATORY BOWEL DISEASE
     Route: 042
     Dates: start: 20110223
  2. METHOTREXATE [Concomitant]
  3. FOLATE [Concomitant]
  4. ANTIBIOTICS [Concomitant]
     Indication: INFLAMMATORY BOWEL DISEASE
  5. VITAMIN D [Concomitant]
  6. IRON [Concomitant]
  7. CHLORHEXIDINE [Concomitant]

REACTIONS (1)
  - Abscess [Recovered/Resolved]
